FAERS Safety Report 8318073-2 (Version None)
Quarter: 2012Q2

REPORT INFORMATION
  Report Type: 
  Country: None (occurrence: None)
  Receive Date: 20120427
  Receipt Date: 20120416
  Transmission Date: 20120825
  Serious: No
  Sender: FDA-Public Use
  Company Number: FR-ROCHE-1057916

PATIENT
  Age: 25 Year
  Sex: Female

DRUGS (8)
  1. XOLAIR [Suspect]
     Dates: start: 20120326
  2. XOLAIR [Suspect]
     Dates: start: 20120312
  3. DESLORATADINE [Concomitant]
  4. SINGULAIR [Concomitant]
  5. VENTOLIN [Concomitant]
  6. RHINOCORT [Concomitant]
  7. XOLAIR [Suspect]
     Indication: ASTHMA
     Dates: start: 20120227
  8. FLUTICASONE PROPIONATE/SALMETEROL [Concomitant]

REACTIONS (2)
  - INJECTION SITE ERYTHEMA [None]
  - ABDOMINAL PAIN [None]
